FAERS Safety Report 13093440 (Version 1)
Quarter: 2017Q1

REPORT INFORMATION
  Report Type: Spontaneous
  Country: US (occurrence: US)
  Receive Date: 20170105
  Receipt Date: 20170105
  Transmission Date: 20170428
  Serious: No
  Sender: FDA-Public Use
  Company Number: None

PATIENT
  Age: 44 Year
  Sex: Male

DRUGS (1)
  1. KRYSTEXXA [Suspect]
     Active Substance: PEGLOTICASE
     Indication: GOUT
     Dosage: 8MG Q 2 WEEK IV
     Route: 042
     Dates: start: 20161202, end: 20161229

REACTIONS (3)
  - Ocular hyperaemia [None]
  - Rash [None]
  - Infusion related reaction [None]

NARRATIVE: CASE EVENT DATE: 20161229
